FAERS Safety Report 12645722 (Version 4)
Quarter: 2016Q4

REPORT INFORMATION
  Report Type: Report from Study
  Country: US (occurrence: US)
  Receive Date: 20160811
  Receipt Date: 20161201
  Transmission Date: 20170207
  Serious: Yes (Hospitalization)
  Sender: FDA-Public Use
  Company Number: US-ACTELION-A-US2016-139064

PATIENT
  Age: 50 Year
  Sex: Female

DRUGS (10)
  1. OPSUMIT [Suspect]
     Active Substance: MACITENTAN
     Indication: PULMONARY ARTERIAL HYPERTENSION
     Dosage: 10 MG, QD
     Route: 048
     Dates: start: 20160311
  2. LOSARTAN. [Concomitant]
     Active Substance: LOSARTAN
  3. POTASSIUM [Concomitant]
     Active Substance: POTASSIUM
  4. LASIX [Concomitant]
     Active Substance: FUROSEMIDE
  5. METFORMIN [Concomitant]
     Active Substance: METFORMIN HYDROCHLORIDE
  6. LUPRON [Concomitant]
     Active Substance: LEUPROLIDE ACETATE
  7. PROVERA [Concomitant]
     Active Substance: MEDROXYPROGESTERONE ACETATE
  8. UPTRAVI [Suspect]
     Active Substance: SELEXIPAG
     Indication: PULMONARY ARTERIAL HYPERTENSION
     Dosage: 600 MG, BID
     Route: 048
     Dates: start: 20160225
  9. UPTRAVI [Suspect]
     Active Substance: SELEXIPAG
     Dosage: 400 MCG, BID
     Route: 048
  10. ADEMPAS [Concomitant]
     Active Substance: RIOCIGUAT

REACTIONS (6)
  - Uterine neoplasm [Unknown]
  - Pain [Not Recovered/Not Resolved]
  - Vaginal haemorrhage [Unknown]
  - Haemorrhage [Not Recovered/Not Resolved]
  - Uterine leiomyoma embolisation [Unknown]
  - Uterine leiomyoma [Not Recovered/Not Resolved]

NARRATIVE: CASE EVENT DATE: 201606
